FAERS Safety Report 9603748 (Version 1)
Quarter: 2013Q4

REPORT INFORMATION
  Report Type: Report from Study
  Country: BR (occurrence: BR)
  Receive Date: 20131007
  Receipt Date: 20131007
  Transmission Date: 20140711
  Serious: Yes (Hospitalization, Other)
  Sender: FDA-Public Use
  Company Number: BR-US-EMD SERONO, INC.-7240855

PATIENT
  Age: 48 Year
  Sex: Male

DRUGS (6)
  1. REBIF [Suspect]
     Indication: RELAPSING-REMITTING MULTIPLE SCLEROSIS
     Route: 058
     Dates: start: 20110414
  2. SERTRALINE [Concomitant]
     Indication: BLOOD CHOLESTEROL INCREASED
  3. SERTRALINE [Concomitant]
     Indication: BLOOD TRIGLYCERIDES INCREASED
  4. AAS [Concomitant]
     Indication: THROMBOSIS
  5. AAS [Concomitant]
     Indication: PERIPHERAL VASCULAR DISORDER
  6. OMEPRAZOLE [Concomitant]
     Indication: PROPHYLAXIS

REACTIONS (6)
  - Sepsis [Recovered/Resolved]
  - Groin abscess [Recovered/Resolved]
  - Subcutaneous abscess [Recovered/Resolved]
  - Urinary tract infection [Recovered/Resolved]
  - Choking [Not Recovered/Not Resolved]
  - Pyrexia [Recovered/Resolved]
